FAERS Safety Report 7526317-X (Version None)
Quarter: 2011Q2

REPORT INFORMATION
  Report Type: 
  Country: None (occurrence: None)
  Receive Date: 20110603
  Receipt Date: 20110603
  Transmission Date: 20111010
  Serious: Yes (Other)
  Sender: FDA-Public Use
  Company Number: None

PATIENT
  Sex: Female
  Weight: 79.3795 kg

DRUGS (1)
  1. RESTASIS [Suspect]
     Indication: DRY EYE
     Dosage: ONE DROP IN EACH EYE TWICE PER DAY
     Route: 047
     Dates: start: 20110514, end: 20110528

REACTIONS (10)
  - EYE DISCHARGE [None]
  - FOREIGN BODY SENSATION IN EYES [None]
  - SWOLLEN TONGUE [None]
  - DIZZINESS [None]
  - LIP SWELLING [None]
  - PHARYNGEAL OEDEMA [None]
  - EYE IRRITATION [None]
  - MALAISE [None]
  - DYSPHAGIA [None]
  - VISION BLURRED [None]
